FAERS Safety Report 5647978-6 (Version None)
Quarter: 2008Q1

REPORT INFORMATION
  Report Type: 
  Country: None (occurrence: None)
  Receive Date: 20080228
  Receipt Date: 20080213
  Transmission Date: 20080703
  Serious: Yes (Hospitalization)
  Sender: FDA-Public Use
  Company Number: 2008PL000016

PATIENT
  Age: 65 Year
  Sex: Male

DRUGS (3)
  1. IMURAN [Suspect]
     Indication: IMMUNOSUPPRESSION
     Dosage: 200 MG; QD; PO
     Route: 048
     Dates: start: 19981001, end: 20050701
  2. TACROLIMUS [Concomitant]
  3. PREDNISONE [Concomitant]

REACTIONS (16)
  - ABDOMINAL PAIN [None]
  - B-CELL LYMPHOMA [None]
  - BLOOD AMYLASE INCREASED [None]
  - CATHETER RELATED COMPLICATION [None]
  - FATIGUE [None]
  - HYPERKALAEMIA [None]
  - LETHARGY [None]
  - LIPASE INCREASED [None]
  - LYMPHOMA [None]
  - PANCREATITIS ACUTE [None]
  - RENAL FAILURE [None]
  - RENAL FAILURE ACUTE [None]
  - RENAL IMPAIRMENT [None]
  - TUMOUR LYSIS SYNDROME [None]
  - URATE NEPHROPATHY [None]
  - VENOUS THROMBOSIS [None]
